FAERS Safety Report 19239157 (Version 1)
Quarter: 2021Q2

REPORT INFORMATION
  Report Type: Spontaneous
  Country: US (occurrence: US)
  Receive Date: 20210510
  Receipt Date: 20210510
  Transmission Date: 20210717
  Serious: No
  Sender: FDA-Public Use
  Company Number: US-TAKEDA-2021TUS028255

PATIENT
  Sex: Female
  Weight: 63 kg

DRUGS (2)
  1. BALSALAZIDE [Concomitant]
     Active Substance: BALSALAZIDE
     Dosage: UNK
  2. ENTYVIO [Suspect]
     Active Substance: VEDOLIZUMAB
     Indication: COLITIS ULCERATIVE
     Dosage: UNK
     Route: 042
     Dates: start: 202007

REACTIONS (2)
  - No adverse event [Unknown]
  - Pregnancy [None]
